FAERS Safety Report 10785730 (Version 2)
Quarter: 2015Q1

REPORT INFORMATION
  Report Type: Spontaneous
  Country: US (occurrence: US)
  Receive Date: 20150211
  Receipt Date: 20150303
  Transmission Date: 20150721
  Serious: No
  Sender: FDA-Public Use
  Company Number: US-009507513-1502USA003619

PATIENT
  Age: 72 Year
  Sex: Female
  Weight: 81.63 kg

DRUGS (3)
  1. CLARITIN [Suspect]
     Active Substance: LORATADINE
     Indication: SEASONAL ALLERGY
  2. CLARITIN [Suspect]
     Active Substance: LORATADINE
     Indication: EYE PRURITUS
     Dosage: UNK, UNKNOWN
     Route: 048
     Dates: start: 20150202
  3. CLARITIN [Suspect]
     Active Substance: LORATADINE
     Indication: SNEEZING

REACTIONS (3)
  - Drug ineffective [Unknown]
  - Overdose [Unknown]
  - Inappropriate schedule of drug administration [Unknown]

NARRATIVE: CASE EVENT DATE: 20150202
